FAERS Safety Report 15832225 (Version 3)
Quarter: 2019Q1

REPORT INFORMATION
  Report Type: Spontaneous
  Country: US (occurrence: US)
  Receive Date: 20190116
  Receipt Date: 20190222
  Transmission Date: 20190417
  Serious: No
  Sender: FDA-Public Use
  Company Number: US-ASTRAZENECA-2019SE04335

PATIENT
  Sex: Female
  Weight: 85.2 kg

DRUGS (9)
  1. BYDUREON BCISE [Suspect]
     Active Substance: EXENATIDE
     Indication: TYPE 2 DIABETES MELLITUS
     Route: 058
     Dates: start: 20181011
  2. FAMOTIDINE. [Concomitant]
     Active Substance: FAMOTIDINE
     Indication: GASTROOESOPHAGEAL REFLUX DISEASE
     Dosage: 40 MG, TWICE DAILY, STARTED ABOUT 3 OR 6 MONTHS AGO
     Route: 048
  3. EZETIMIBE. [Concomitant]
     Active Substance: EZETIMIBE
     Indication: BLOOD CHOLESTEROL ABNORMAL
     Dosage: 10 MG, DAILY, STARTED ABOUT 1 YEAR AGO
     Route: 048
  4. OMEPRAZOLE. [Suspect]
     Active Substance: OMEPRAZOLE
     Indication: GASTROOESOPHAGEAL REFLUX DISEASE
     Dosage: 20 MG, TWICE DAILY, STARTED ON MEDICATION YEARS AND YEARS AGO
     Route: 048
  5. MONTELUKAST [Concomitant]
     Active Substance: MONTELUKAST SODIUM
     Indication: HYPERSENSITIVITY
     Dosage: 10 MG, ONCE AT NIGHT, STARTED ABOUT 10 YEARS AGO
     Route: 048
  6. LISINOPRIL. [Suspect]
     Active Substance: LISINOPRIL
     Indication: HYPERTENSION
     Dosage: 10 MG, DAILY, STARTED A LONG TIME AGO, OVER 20 YEARS AGO.
     Route: 048
  7. REPAGLINIDE. [Concomitant]
     Active Substance: REPAGLINIDE
     Indication: DIABETES MELLITUS
     Dosage: 2 MG, TWICE DAILY, STARTED ABOUT 10 OR 11 MONTHS AGO
     Route: 048
  8. BABY ASPIRIN [Concomitant]
     Active Substance: ASPIRIN
     Route: 048
  9. METOPROLOL. [Suspect]
     Active Substance: METOPROLOL
     Indication: CARDIAC DISORDER
     Route: 048

REACTIONS (5)
  - Atrial fibrillation [Unknown]
  - Atrial flutter [Unknown]
  - Injection site bruising [Unknown]
  - Injection site pain [Unknown]
  - Injection site mass [Unknown]
